FAERS Safety Report 24908339 (Version 1)
Quarter: 2025Q1

REPORT INFORMATION
  Report Type: Spontaneous
  Country: US (occurrence: US)
  Receive Date: 20250131
  Receipt Date: 20250131
  Transmission Date: 20250409
  Serious: No
  Sender: TAKEDA
  Company Number: US-TAKEDA-2025TUS009489

PATIENT
  Sex: Male
  Weight: 75 kg

DRUGS (1)
  1. GAMMAGARD LIQUID [Suspect]
     Active Substance: HUMAN IMMUNOGLOBULIN G
     Indication: Immune-mediated myositis

REACTIONS (2)
  - No adverse event [Unknown]
  - Product prescribing issue [Unknown]
